FAERS Safety Report 8549142-X (Version None)
Quarter: 2012Q3

REPORT INFORMATION
  Report Type: 
  Country: None (occurrence: None)
  Receive Date: 20120730
  Receipt Date: 20120725
  Transmission Date: 20120928
  Serious: Yes (Other)
  Sender: FDA-Public Use
  Company Number: US-PFIZER INC-2012180116

PATIENT
  Sex: Male

DRUGS (3)
  1. VITAMIN D [Concomitant]
     Dosage: UNK
  2. SOLU-MEDROL [Suspect]
     Indication: MULTIPLE SCLEROSIS
     Dosage: UNK
  3. COUMADIN [Concomitant]
     Dosage: UNK

REACTIONS (4)
  - FLUID RETENTION [None]
  - FLATULENCE [None]
  - ASCITES [None]
  - ERUCTATION [None]
